FAERS Safety Report 18572169 (Version 1)
Quarter: 2020Q4

REPORT INFORMATION
  Report Type: Spontaneous
  Country: NL (occurrence: NL)
  Receive Date: 20201203
  Receipt Date: 20201203
  Transmission Date: 20210114
  Serious: Yes (Other)
  Sender: FDA-Public Use
  Company Number: NL-SUN PHARMACEUTICAL INDUSTRIES LTD-2020RR-269278

PATIENT
  Sex: Female
  Weight: 63 kg

DRUGS (2)
  1. ETHINYLESTRADIOL/LEVONORGESTREL TABLET 30/150UG / BRAND NAME NOT SP... [Concomitant]
     Indication: PRODUCT USED FOR UNKNOWN INDICATION
     Dosage: TABLET, 30/150 (MICROGRAM) ()
     Route: 065
  2. ISOTRETINOIN. [Suspect]
     Active Substance: ISOTRETINOIN
     Indication: ACNE
     Dosage: 1 X PER DAG 1 STUK
     Route: 065
     Dates: start: 20200921

REACTIONS (2)
  - Obsessive-compulsive personality disorder [Not Recovered/Not Resolved]
  - Depression [Not Recovered/Not Resolved]
